FAERS Safety Report 23276372 (Version 3)
Quarter: 2024Q2

REPORT INFORMATION
  Report Type: Report from Study
  Country: US (occurrence: US)
  Receive Date: 20231208
  Receipt Date: 20240619
  Transmission Date: 20240717
  Serious: No
  Sender: FDA-Public Use
  Company Number: US-BIOVITRUM-2023-US-019541

PATIENT
  Age: 67 Year
  Sex: Female

DRUGS (1)
  1. KINERET [Suspect]
     Active Substance: ANAKINRA
     Indication: Rheumatoid arthritis
     Dosage: DAILY
     Route: 058
     Dates: start: 20220309

REACTIONS (3)
  - Eczema [Recovered/Resolved]
  - Product quality issue [Unknown]
  - Red blood cell count abnormal [Unknown]
